FAERS Safety Report 7712053-3 (Version None)
Quarter: 2011Q3

REPORT INFORMATION
  Report Type: 
  Country: None (occurrence: None)
  Receive Date: 20110826
  Receipt Date: 20100317
  Transmission Date: 20111222
  Serious: Yes (Hospitalization)
  Sender: FDA-Public Use
  Company Number: CZ-UCBSA-003493

PATIENT
  Sex: Male
  Weight: 74 kg

DRUGS (7)
  1. METHOTREXATE [Concomitant]
     Indication: RHEUMATOID ARTHRITIS
     Route: 048
     Dates: start: 20050614
  2. ACIDUM FOLICUM [Concomitant]
     Indication: RHEUMATOID ARTHRITIS
     Route: 048
     Dates: start: 20020129
  3. COXTRAL [Concomitant]
     Indication: RHEUMATOID ARTHRITIS
     Route: 048
     Dates: start: 20041125
  4. CERTOLIZUMAB PEGOL [Suspect]
     Indication: RHEUMATOID ARTHRITIS
     Route: 058
     Dates: start: 20060606
  5. KORYLAN [Concomitant]
     Indication: PROPHYLAXIS
     Route: 048
     Dates: start: 20071010
  6. MEDROL [Concomitant]
     Indication: RHEUMATOID ARTHRITIS
     Route: 048
     Dates: start: 20020625
  7. FLAMEXIN [Concomitant]
     Indication: RHEUMATOID ARTHRITIS
     Route: 048
     Dates: start: 20050129

REACTIONS (2)
  - LUMBAR SPINAL STENOSIS [None]
  - CYST [None]
